FAERS Safety Report 12293909 (Version 1)
Quarter: 2016Q2

REPORT INFORMATION
  Report Type: Spontaneous
  Country: US (occurrence: US)
  Receive Date: 20160422
  Receipt Date: 20160422
  Transmission Date: 20160815
  Serious: No
  Sender: FDA-Public Use
  Company Number: US-009507513-1604USA004523

PATIENT
  Sex: Male

DRUGS (1)
  1. BELSOMRA [Suspect]
     Active Substance: SUVOREXANT
     Indication: INSOMNIA
     Dosage: PATIENT STARTED THERAPY 2 MONTHS AGO
     Route: 065
     Dates: start: 201602, end: 20160406

REACTIONS (1)
  - Sleep paralysis [Unknown]

NARRATIVE: CASE EVENT DATE: 2016
